FAERS Safety Report 23856902 (Version 1)
Quarter: 2024Q2

REPORT INFORMATION
  Report Type: Spontaneous
  Country: US (occurrence: US)
  Receive Date: 20240515
  Receipt Date: 20240515
  Transmission Date: 20240715
  Serious: No
  Sender: FDA-Public Use
  Company Number: US-BRISTOL-MYERS SQUIBB COMPANY-2024-074901

PATIENT
  Sex: Female

DRUGS (1)
  1. SOTYKTU [Suspect]
     Active Substance: DEUCRAVACITINIB
     Indication: Chronic cutaneous lupus erythematosus

REACTIONS (1)
  - Off label use [Unknown]
